FAERS Safety Report 4361030-1 (Version None)
Quarter: 2004Q2

REPORT INFORMATION
  Report Type: 
  Country: None (occurrence: None)
  Receive Date: 20040517
  Receipt Date: 20040506
  Transmission Date: 20050107
  Serious: Yes (Life-Threatening, Hospitalization)
  Sender: FDA-Public Use
  Company Number: 02P-062-0196043-00

PATIENT
  Age: 59 Year
  Sex: Female
  Weight: 62 kg

DRUGS (7)
  1. KALETRA [Suspect]
     Indication: PROPHYLAXIS
     Dosage: 3 CAPSULE, 2 IN 1 D, PER ORAL
     Route: 048
     Dates: start: 20020321, end: 20020322
  2. FELODIPINE [Suspect]
     Indication: HYPERTENSION
     Dosage: UNK
     Route: 065
     Dates: end: 20020322
  3. ZIDOVUDINE W/LAMIVUDINE [Suspect]
     Indication: PROPHYLAXIS
     Dosage: 1 CAPSULE, 2 IN 1 D, PER ORAL
     Route: 048
     Dates: start: 20020321, end: 20020322
  4. ATENOLOL [Concomitant]
  5. RAMIPRIL [Concomitant]
  6. INSULIN [Concomitant]
  7. ATORVASTATIN CALCIUM [Concomitant]

REACTIONS (24)
  - ASTHENIA [None]
  - BLOOD GLUCOSE ABNORMAL [None]
  - BRADYCARDIA [None]
  - CARDIAC MURMUR [None]
  - CIRCULATORY COLLAPSE [None]
  - COGNITIVE DISORDER [None]
  - DEHYDRATION [None]
  - DISTURBANCE IN ATTENTION [None]
  - DIZZINESS [None]
  - DRUG INTERACTION [None]
  - DRUG LEVEL INCREASED [None]
  - FEELING ABNORMAL [None]
  - GLUCOSE URINE PRESENT [None]
  - HYPOTENSION [None]
  - INFLAMMATION [None]
  - MENTAL DISORDER [None]
  - MULTI-ORGAN FAILURE [None]
  - NAUSEA [None]
  - NERVOUS SYSTEM DISORDER [None]
  - RENAL FAILURE ACUTE [None]
  - RESPIRATORY FAILURE [None]
  - SOMNOLENCE [None]
  - VERTIGO [None]
  - VOMITING [None]
